FAERS Safety Report 4373265-2 (Version None)
Quarter: 2004Q2

REPORT INFORMATION
  Report Type: 
  Country: None (occurrence: None)
  Receive Date: 20040608
  Receipt Date: 20040526
  Transmission Date: 20050107
  Serious: Yes (Life-Threatening)
  Sender: FDA-Public Use
  Company Number: NL-GLAXOSMITHKLINE-B0334138A

PATIENT
  Sex: Male

DRUGS (7)
  1. DUTASTERIDE [Suspect]
     Route: 048
     Dates: start: 20040319, end: 20040510
  2. DIOVAN [Concomitant]
  3. ZOCOR [Concomitant]
     Route: 048
  4. ASPIRIN [Concomitant]
     Route: 048
  5. SERETIDE [Concomitant]
  6. NIFEDIPINE [Concomitant]
     Route: 048
  7. RHINOCORT [Concomitant]

REACTIONS (2)
  - ATRIAL FIBRILLATION [None]
  - PALPITATIONS [None]
